FAERS Safety Report 11188242 (Version 1)
Quarter: 2015Q2

REPORT INFORMATION
  Report Type: Spontaneous
  Country: US (occurrence: US)
  Receive Date: 20150615
  Receipt Date: 20150615
  Transmission Date: 20150821
  Serious: No
  Sender: FDA-Public Use
  Company Number: US-JNJFOC-20150511816

PATIENT
  Age: 53 Year
  Sex: Female
  Weight: 90.27 kg

DRUGS (1)
  1. REMICADE [Suspect]
     Active Substance: INFLIXIMAB
     Indication: COLITIS ULCERATIVE
     Route: 042
     Dates: start: 201308, end: 201402

REACTIONS (1)
  - Antibody test positive [Unknown]

NARRATIVE: CASE EVENT DATE: 201402
